FAERS Safety Report 4411993-0 (Version None)
Quarter: 2004Q3

REPORT INFORMATION
  Report Type: 
  Country: None (occurrence: None)
  Receive Date: 20040730
  Receipt Date: 20040728
  Transmission Date: 20050211
  Serious: Yes (Other)
  Sender: FDA-Public Use
  Company Number: JP-ROCHE-375545

PATIENT
  Age: 60 Year
  Sex: Female

DRUGS (4)
  1. ANEXATE [Suspect]
     Indication: REVERSAL OF SEDATION
     Route: 042
     Dates: start: 20040715
  2. NALOXONE HCL [Concomitant]
     Route: 042
     Dates: start: 20040715
  3. OPYSTAN [Concomitant]
     Route: 042
     Dates: start: 20040715
  4. SILECE [Concomitant]
     Route: 042
     Dates: start: 20040715

REACTIONS (1)
  - LOSS OF CONSCIOUSNESS [None]
